FAERS Safety Report 20374959 (Version 2)
Quarter: 2022Q2

REPORT INFORMATION
  Report Type: Spontaneous
  Country: US (occurrence: US)
  Receive Date: 20220125
  Receipt Date: 20220503
  Transmission Date: 20220720
  Serious: No
  Sender: FDA-Public Use
  Company Number: US-SA-SAC20220122000150

PATIENT
  Age: 14 Year
  Sex: Male
  Weight: 72.7 kg

DRUGS (2)
  1. DUPIXENT [Suspect]
     Active Substance: DUPILUMAB
     Dosage: 300 MG, QOW
     Route: 058
  2. COVID-19 VACCINE [Concomitant]
     Indication: Immunisation
     Dosage: UNK

REACTIONS (4)
  - Injection site extravasation [Unknown]
  - Wrong technique in device usage process [Unknown]
  - Product use issue [Unknown]
  - Inappropriate schedule of product administration [Unknown]

NARRATIVE: CASE EVENT DATE: 20220101
